FAERS Safety Report 6455245-6 (Version None)
Quarter: 2009Q4

REPORT INFORMATION
  Report Type: 
  Country: None (occurrence: None)
  Receive Date: 20091119
  Receipt Date: 20091109
  Transmission Date: 20100525
  Serious: Yes (Other)
  Sender: FDA-Public Use
  Company Number: 8054342

PATIENT
  Age: 12 Month
  Sex: Male

DRUGS (1)
  1. KEPPRA [Suspect]
     Dosage: TRP
     Route: 064

REACTIONS (2)
  - LEUKAEMIA [None]
  - MATERNAL DRUGS AFFECTING FOETUS [None]
